FAERS Safety Report 16749464 (Version 1)
Quarter: 2019Q3

REPORT INFORMATION
  Report Type: Spontaneous
  Country: CA (occurrence: CA)
  Receive Date: 20190828
  Receipt Date: 20190828
  Transmission Date: 20191005
  Serious: Yes (Other)
  Sender: FDA-Public Use
  Company Number: CA-PFIZER INC-2019363450

PATIENT
  Sex: Female

DRUGS (4)
  1. BACLOFEN. [Suspect]
     Active Substance: BACLOFEN
     Dosage: 95.0 UG, 1X/DAY
     Route: 037
  2. CLONIDINE. [Suspect]
     Active Substance: CLONIDINE
     Dosage: 49.5 UG, 1X/DAY
     Route: 037
  3. FENTANYL CITRATE. [Suspect]
     Active Substance: FENTANYL CITRATE
     Dosage: 792.0 UG, 1X/DAY
     Route: 037
  4. BUPIVACAINE HCL [Suspect]
     Active Substance: BUPIVACAINE HYDROCHLORIDE
     Dosage: 1.98 UG, 1X/DAY (DOSAGE FORM: SOLUTION BLOCK/INFILTRATION)
     Route: 037

REACTIONS (7)
  - Agitation [Recovering/Resolving]
  - Movement disorder [Recovering/Resolving]
  - Therapeutic response decreased [Recovering/Resolving]
  - Sedation [Recovering/Resolving]
  - Pain [Recovering/Resolving]
  - Nervous system disorder [Recovering/Resolving]
  - Unresponsive to stimuli [Recovering/Resolving]
